FAERS Safety Report 7940534-6 (Version None)
Quarter: 2011Q4

REPORT INFORMATION
  Report Type: 
  Country: None (occurrence: None)
  Receive Date: 20111114
  Receipt Date: 20110331
  Transmission Date: 20120403
  Serious: Yes (Hospitalization)
  Sender: FDA-Public Use
  Company Number: 2011S1000241

PATIENT
  Age: 43 Year
  Sex: Female

DRUGS (1)
  1. CUBICIN [Suspect]
     Indication: BREAST CELLULITIS
     Dosage: IV
     Route: 042
     Dates: start: 20110224, end: 20110226

REACTIONS (1)
  - DERMATITIS ALLERGIC [None]
